FAERS Safety Report 6280233-2 (Version None)
Quarter: 2009Q3

REPORT INFORMATION
  Report Type: 
  Country: None (occurrence: None)
  Receive Date: 20090723
  Receipt Date: 20090713
  Transmission Date: 20100115
  Serious: Yes (Death, Hospitalization)
  Sender: FDA-Public Use
  Company Number: IL-MERCK-0907USA02422

PATIENT
  Age: 75 Year
  Sex: Male

DRUGS (4)
  1. INVANZ [Suspect]
     Indication: STAPHYLOCOCCAL INFECTION
     Route: 042
  2. INVANZ [Suspect]
     Indication: PROTEUS INFECTION
     Route: 042
  3. VANCOMYCIN [Concomitant]
     Indication: STAPHYLOCOCCAL INFECTION
     Route: 042
  4. VANCOMYCIN [Concomitant]
     Indication: PROTEUS INFECTION
     Route: 042

REACTIONS (3)
  - ARTHRITIS BACTERIAL [None]
  - DRUG INEFFECTIVE [None]
  - MULTI-ORGAN FAILURE [None]
